FAERS Safety Report 19849226 (Version 2)
Quarter: 2021Q4

REPORT INFORMATION
  Report Type: Report from Study
  Country: JP (occurrence: None)
  Receive Date: 20210917
  Receipt Date: 20211203
  Transmission Date: 20220303
  Serious: No
  Sender: FDA-Public Use
  Company Number: JP-MERCK HEALTHCARE KGAA-9218909

PATIENT
  Age: 76 Year
  Sex: Male

DRUGS (5)
  1. TEPMETKO [Suspect]
     Active Substance: TEPOTINIB HYDROCHLORIDE
     Indication: Non-small cell lung cancer
     Dosage: 2 TABLETS
     Route: 048
     Dates: start: 20201027, end: 20210119
  2. TEPMETKO [Suspect]
     Active Substance: TEPOTINIB HYDROCHLORIDE
     Dosage: 1 TABLET
     Route: 048
     Dates: start: 20210120
  3. SILODOSIN [Concomitant]
     Active Substance: SILODOSIN
     Indication: Benign prostatic hyperplasia
     Dosage: 2 TIMES
     Route: 048
  4. BETAHISTINE MESILATE [Concomitant]
     Active Substance: BETAHISTINE MESILATE
     Indication: Dizziness
     Dosage: 3 TIMES
     Route: 048
  5. FENOFIBRATE [Concomitant]
     Active Substance: FENOFIBRATE
     Indication: Free fatty acids
     Dosage: 1 TIME
     Route: 048

REACTIONS (1)
  - Oedema peripheral [Not Recovered/Not Resolved]

NARRATIVE: CASE EVENT DATE: 20210105
